FAERS Safety Report 20654488 (Version 2)
Quarter: 2022Q2

REPORT INFORMATION
  Report Type: Spontaneous
  Country: PL (occurrence: PL)
  Receive Date: 20220330
  Receipt Date: 20220405
  Transmission Date: 20220720
  Serious: Yes (Hospitalization, Other)
  Sender: FDA-Public Use
  Company Number: PL-RECORDES-2022000973

PATIENT
  Age: 70 Year
  Sex: Male

DRUGS (13)
  1. DICLOFENAC [Suspect]
     Active Substance: DICLOFENAC
     Indication: Product used for unknown indication
     Dosage: IN THE FORM OF TWO DIFFERENT PREPARATIONS
     Route: 065
  2. CELECOXIB [Suspect]
     Active Substance: CELECOXIB
     Dosage: IN THE FORM OF TWO DIFFERENT PREPARATIONS
  3. DULOXETINE [Suspect]
     Active Substance: DULOXETINE
     Indication: Spinal pain
     Dosage: 1 DF, QD
     Route: 065
  4. ASPIRIN [Suspect]
     Active Substance: ASPIRIN
     Dosage: 1 DF, QD
  5. PANTOPRAZOLE [Concomitant]
     Active Substance: PANTOPRAZOLE
     Dosage: 1 DF, QD
  6. NIMESULIDE [Suspect]
     Active Substance: NIMESULIDE
     Dosage: IN THE FORM OF TWO DIFFERENT PREPARATIONS
  7. GABAPENTIN [Concomitant]
     Active Substance: GABAPENTIN
     Dosage: 1 DF, BID
  8. INDAPAMIDE [Suspect]
     Active Substance: INDAPAMIDE
     Dosage: 1 DF, QD
  9. ATORVASTATIN [Concomitant]
     Active Substance: ATORVASTATIN
     Dosage: 1 DF, QD
  10. NEBIVOLOL [Concomitant]
     Active Substance: NEBIVOLOL
     Dosage: 1 DF, QD
  11. METFORMIN [Concomitant]
     Active Substance: METFORMIN HYDROCHLORIDE
     Indication: Type 2 diabetes mellitus
     Dosage: AT MEALS
  12. KETOPROFEN [Suspect]
     Active Substance: KETOPROFEN
     Dosage: IN THE FORM OF TWO DIFFERENT PREPARATIONS
  13. VALSARTAN [Concomitant]
     Active Substance: VALSARTAN
     Dosage: 1 DF, QD

REACTIONS (3)
  - Hyponatraemia [Recovered/Resolved]
  - Urinary retention [Recovered/Resolved]
  - Drug interaction [Recovered/Resolved]
